FAERS Safety Report 16298196 (Version 3)
Quarter: 2019Q2

REPORT INFORMATION
  Report Type: Report from Study
  Country: ES (occurrence: ES)
  Receive Date: 20190510
  Receipt Date: 20190530
  Transmission Date: 20190711
  Serious: Yes (Hospitalization, Other)
  Sender: FDA-Public Use
  Company Number: ES-SA-2019SA121329

PATIENT
  Age: 84 Year
  Sex: Female
  Weight: 49.8 kg

DRUGS (3)
  1. INSULIN GLARGINE [Suspect]
     Active Substance: INSULIN GLARGINE
     Indication: TYPE 2 DIABETES MELLITUS
     Dosage: 21 IU, UNK
     Route: 058
  2. EBYMECT [Concomitant]
     Active Substance: DAPAGLIFLOZIN PROPANEDIOL\METFORMIN HYDROCHLORIDE
     Indication: TYPE 2 DIABETES MELLITUS
     Route: 048
  3. INSULIN GLARGINE [Suspect]
     Active Substance: INSULIN GLARGINE
     Dosage: 10 IU, UNK
     Route: 058

REACTIONS (9)
  - Gastroenteritis [Recovered/Resolved]
  - Respiratory tract infection [Recovering/Resolving]
  - Gastritis [Recovering/Resolving]
  - Blood glucose abnormal [Recovered/Resolved]
  - Iron deficiency anaemia [Recovered/Resolved]
  - Eating disorder [Recovered/Resolved]
  - Hyperglycaemia [Not Recovered/Not Resolved]
  - Hypoglycaemia [Recovered/Resolved]
  - Lung infection [Recovering/Resolving]
